FAERS Safety Report 6161180-3 (Version None)
Quarter: 2009Q2

REPORT INFORMATION
  Report Type: 
  Country: None (occurrence: None)
  Receive Date: 20090421
  Receipt Date: 20090413
  Transmission Date: 20091009
  Serious: Yes (Other)
  Sender: FDA-Public Use
  Company Number: US-ALLERGAN-0905095US

PATIENT
  Sex: Male

DRUGS (2)
  1. ZYMAR [Suspect]
     Indication: PREOPERATIVE CARE
     Dosage: 1 GTT, UNK
     Route: 047
     Dates: start: 20090412
  2. UNSPECIFIED [Concomitant]
     Indication: COLITIS

REACTIONS (4)
  - DYSGEUSIA [None]
  - LIP SWELLING [None]
  - OEDEMA MOUTH [None]
  - URTICARIA [None]
